FAERS Safety Report 5419766-7 (Version None)
Quarter: 2007Q3

REPORT INFORMATION
  Report Type: 
  Country: None (occurrence: None)
  Receive Date: 20070820
  Receipt Date: 20070807
  Transmission Date: 20080115
  Serious: Yes (Other)
  Sender: FDA-Public Use
  Company Number: US-TYCO HEALTHCARE/MALLINCKRODT-T200700912

PATIENT

DRUGS (7)
  1. HYDROMORPHONE HCL [Suspect]
     Indication: PROCEDURAL PAIN
     Dosage: 1 MG, Q4H
     Route: 042
  2. MORPHINE [Concomitant]
     Indication: PAIN MANAGEMENT
     Dosage: 2 MG, Q4H
     Route: 042
  3. FUROSEMIDE [Concomitant]
  4. ANGIOTENSIN II ANTAGONISTS [Concomitant]
  5. HMG COA REDUCTASE INHIBITORS [Concomitant]
  6. ASPIRIN [Concomitant]
  7. VANCOMYCIN [Concomitant]
     Indication: WOUND INFECTION STAPHYLOCOCCAL
     Route: 042

REACTIONS (2)
  - ANAPHYLACTIC REACTION [None]
  - RESPIRATORY DISTRESS [None]
